FAERS Safety Report 20416684 (Version 3)
Quarter: 2022Q3

REPORT INFORMATION
  Report Type: Spontaneous
  Country: JP (occurrence: JP)
  Receive Date: 20220202
  Receipt Date: 20220714
  Transmission Date: 20221027
  Serious: Yes (Hospitalization, Other)
  Sender: FDA-Public Use
  Company Number: JP-GSKNCCC-Case-01409164_AE-54305

PATIENT

DRUGS (1)
  1. EPZICOM [Suspect]
     Active Substance: ABACAVIR SULFATE\LAMIVUDINE
     Dosage: UNK

REACTIONS (5)
  - Pneumonia [Recovering/Resolving]
  - Hospitalisation [Recovering/Resolving]
  - Renal impairment [Recovering/Resolving]
  - Sepsis [Recovering/Resolving]
  - Urinary tract infection [Recovering/Resolving]

NARRATIVE: CASE EVENT DATE: 20220101
